FAERS Safety Report 8676493 (Version 2)
Quarter: 2013Q4

REPORT INFORMATION
  Report Type: Spontaneous
  Country: JP (occurrence: JP)
  Receive Date: 20120720
  Receipt Date: 20131101
  Transmission Date: 20140711
  Serious: No
  Sender: FDA-Public Use
  Company Number: JP-009507513-1205USA04617

PATIENT
  Age: 39 Year
  Sex: Male

DRUGS (9)
  1. GLACTIV [Suspect]
     Indication: TYPE 2 DIABETES MELLITUS
     Dosage: 50 MG, QD
     Route: 048
     Dates: start: 20120417, end: 20120423
  2. ACTOS [Concomitant]
  3. BASEN [Concomitant]
  4. AMARYL [Concomitant]
  5. GLYBURIDE [Concomitant]
     Dosage: UNK
     Dates: start: 20111108
  6. VOGLIBOSE [Concomitant]
     Dosage: UNK
     Dates: start: 20111108
  7. METFORMIN HYDROCHLORIDE [Concomitant]
     Dosage: UNK
     Dates: start: 20120518
  8. CALCIUM POLYSTYRENE SULFONATE [Concomitant]
     Dosage: UNK
     Dates: start: 20120309
  9. NESINA [Suspect]
     Dosage: UNK
     Dates: start: 20120507, end: 20120518

REACTIONS (1)
  - Glossitis [Recovered/Resolved]
